FAERS Safety Report 23289334 (Version 1)
Quarter: 2023Q4

REPORT INFORMATION
  Report Type: Spontaneous
  Country: US (occurrence: None)
  Receive Date: 20231211
  Receipt Date: 20231211
  Transmission Date: 20240110
  Serious: Yes (Other)
  Sender: FDA-Public Use
  Company Number: None

PATIENT
  Age: 45 Year
  Sex: Female
  Weight: 78.75 kg

DRUGS (3)
  1. AMLODIPINE BESYLATE [Suspect]
     Active Substance: AMLODIPINE BESYLATE
     Indication: Blood pressure diastolic increased
     Dosage: 1 TABLET DAILY ORAL
     Route: 048
  2. PROPRANOLOL [Concomitant]
     Active Substance: PROPRANOLOL HYDROCHLORIDE
  3. BACLOFEN [Concomitant]
     Active Substance: BACLOFEN

REACTIONS (20)
  - Nausea [None]
  - Influenza [None]
  - Diarrhoea [None]
  - Oedema peripheral [None]
  - Oedema peripheral [None]
  - Oedema peripheral [None]
  - Face oedema [None]
  - Eye swelling [None]
  - Brain fog [None]
  - Confusional state [None]
  - Fatigue [None]
  - Hypersomnia [None]
  - Asthenia [None]
  - Abdominal pain upper [None]
  - Chills [None]
  - Chills [None]
  - Arthralgia [None]
  - Vision blurred [None]
  - Urine odour abnormal [None]
  - Scleral discolouration [None]

NARRATIVE: CASE EVENT DATE: 20231203
